FAERS Safety Report 24412107 (Version 1)
Quarter: 2024Q4

REPORT INFORMATION
  Report Type: Spontaneous
  Country: US (occurrence: US)
  Receive Date: 20241008
  Receipt Date: 20241008
  Transmission Date: 20250115
  Serious: No
  Sender: BAYER
  Company Number: US-BAYER-2024A140736

PATIENT
  Age: 58 Year
  Sex: Male

DRUGS (2)
  1. ASTEPRO [Suspect]
     Active Substance: AZELASTINE HYDROCHLORIDE
     Indication: Hypersensitivity
     Dosage: 1 SHOT IN EACH NOSTRI
     Route: 055
     Dates: start: 202409, end: 20241001
  2. ASTEPRO [Suspect]
     Active Substance: AZELASTINE HYDROCHLORIDE
     Indication: Nasopharyngitis

REACTIONS (2)
  - Oral discomfort [Recovered/Resolved with Sequelae]
  - Throat irritation [Recovered/Resolved with Sequelae]

NARRATIVE: CASE EVENT DATE: 20240901
